FAERS Safety Report 19796229 (Version 1)
Quarter: 2021Q3

REPORT INFORMATION
  Report Type: Spontaneous
  Country: JP (occurrence: JP)
  Receive Date: 20210907
  Receipt Date: 20210907
  Transmission Date: 20211014
  Serious: Yes (Other)
  Sender: FDA-Public Use
  Company Number: JP-ELI_LILLY_AND_COMPANY-JP202108006435

PATIENT
  Age: 35 Year
  Sex: Male

DRUGS (2)
  1. CYRAMZA [Suspect]
     Active Substance: RAMUCIRUMAB
     Indication: OESOPHAGEAL CARCINOMA
     Dosage: UNK
     Route: 041
     Dates: start: 20200719
  2. ABRAXANE [Concomitant]
     Active Substance: PACLITAXEL
     Indication: OESOPHAGEAL CARCINOMA
     Dosage: UNK
     Dates: start: 20200719

REACTIONS (1)
  - Wound dehiscence [Recovering/Resolving]

NARRATIVE: CASE EVENT DATE: 20210729
